FAERS Safety Report 18323890 (Version 4)
Quarter: 2020Q4

REPORT INFORMATION
  Report Type: Spontaneous
  Country: US (occurrence: US)
  Receive Date: 20200929
  Receipt Date: 20201124
  Transmission Date: 20210113
  Serious: Yes (Hospitalization, Other)
  Sender: FDA-Public Use
  Company Number: US-PFIZER INC-2020367398

PATIENT
  Age: 54 Year
  Sex: Male

DRUGS (11)
  1. TICAGRELOR. [Interacting]
     Active Substance: TICAGRELOR
     Indication: CATHETERISATION CARDIAC
  2. TICAGRELOR. [Interacting]
     Active Substance: TICAGRELOR
     Indication: STENT PLACEMENT
     Dosage: 40 MG, 1X/DAY
     Dates: start: 2018
  3. ATORVASTATIN CALCIUM. [Suspect]
     Active Substance: ATORVASTATIN CALCIUM
     Indication: DYSLIPIDAEMIA
     Dosage: 40 MG, DAILY
     Dates: start: 2018
  4. ATORVASTATIN CALCIUM. [Interacting]
     Active Substance: ATORVASTATIN CALCIUM
     Indication: STENT PLACEMENT
  5. ATORVASTATIN CALCIUM. [Interacting]
     Active Substance: ATORVASTATIN CALCIUM
     Indication: ACUTE MYOCARDIAL INFARCTION
  6. CLOPIDOGREL [Concomitant]
     Active Substance: CLOPIDOGREL BISULFATE
     Indication: STENT PLACEMENT
     Dosage: UNK
  7. METOPROLOL. [Concomitant]
     Active Substance: METOPROLOL
     Indication: STENT PLACEMENT
     Dosage: UNK
  8. TICAGRELOR. [Interacting]
     Active Substance: TICAGRELOR
     Indication: ACUTE MYOCARDIAL INFARCTION
  9. ATORVASTATIN CALCIUM. [Interacting]
     Active Substance: ATORVASTATIN CALCIUM
     Indication: CATHETERISATION CARDIAC
  10. METOPROLOL. [Concomitant]
     Active Substance: METOPROLOL
     Indication: CATHETERISATION CARDIAC
  11. METOPROLOL. [Concomitant]
     Active Substance: METOPROLOL
     Indication: ACUTE MYOCARDIAL INFARCTION

REACTIONS (6)
  - Myopathy [Recovered/Resolved]
  - Drug interaction [Recovered/Resolved]
  - Muscle necrosis [Recovered/Resolved with Sequelae]
  - Rhabdomyolysis [Unknown]
  - Blood creatine phosphokinase increased [Recovered/Resolved]
  - AST/ALT ratio abnormal [Unknown]

NARRATIVE: CASE EVENT DATE: 201810
